FAERS Safety Report 15867637 (Version 8)
Quarter: 2019Q3

REPORT INFORMATION
  Report Type: Spontaneous
  Country: US (occurrence: US)
  Receive Date: 20190125
  Receipt Date: 20190703
  Transmission Date: 20191004
  Serious: Yes (Other)
  Sender: FDA-Public Use
  Company Number: US-PFIZER INC-2019010674

PATIENT
  Age: 58 Year
  Sex: Female
  Weight: 49 kg

DRUGS (6)
  1. IBRANCE [Suspect]
     Active Substance: PALBOCICLIB
     Dosage: 100 MG, CYCLIC (21 DAYS WITH 7 DAYS OFF)
     Route: 048
     Dates: start: 20190312, end: 201905
  2. IBRANCE [Suspect]
     Active Substance: PALBOCICLIB
     Dosage: 100 MG, CYCLIC (21 DAYS WITH 7 DAYS OFF)
     Route: 048
     Dates: start: 20190206, end: 20190311
  3. OXYCODONE [Suspect]
     Active Substance: OXYCODONE
     Indication: PAIN
     Dosage: UNK
  4. GABAPENTIN. [Concomitant]
     Active Substance: GABAPENTIN
     Dosage: UNK
  5. IBRANCE [Suspect]
     Active Substance: PALBOCICLIB
     Indication: BREAST CANCER METASTATIC
     Dosage: 125 MG, CYCLIC (DAILY IN MORNING, 21 DAYS ON, 7 DAYS OFF)
     Route: 048
     Dates: start: 20181225, end: 20190205
  6. LETROZOLE. [Concomitant]
     Active Substance: LETROZOLE
     Dosage: UNK

REACTIONS (12)
  - Constipation [Not Recovered/Not Resolved]
  - Nausea [Recovering/Resolving]
  - Red blood cell count decreased [Recovering/Resolving]
  - Neutropenia [Unknown]
  - Gastric cancer [Unknown]
  - Full blood count decreased [Unknown]
  - Fatigue [Recovering/Resolving]
  - Peripheral swelling [Unknown]
  - Second primary malignancy [Unknown]
  - Insomnia [Unknown]
  - Leukopenia [Unknown]
  - Joint swelling [Unknown]

NARRATIVE: CASE EVENT DATE: 2019
